FAERS Safety Report 7347849-3 (Version None)
Quarter: 2011Q1

REPORT INFORMATION
  Report Type: 
  Country: None (occurrence: None)
  Receive Date: 20110311
  Receipt Date: 20110302
  Transmission Date: 20110831
  Serious: Yes (Hospitalization)
  Sender: FDA-Public Use
  Company Number: CA-JNJFOC-20110302260

PATIENT
  Sex: Female

DRUGS (1)
  1. REMICADE [Suspect]
     Indication: COLITIS ULCERATIVE
     Route: 042

REACTIONS (7)
  - HYPERTHYROIDISM [None]
  - COUGH [None]
  - WEIGHT DECREASED [None]
  - NASOPHARYNGITIS [None]
  - CHILLS [None]
  - VIRAL INFECTION [None]
  - FATIGUE [None]
